FAERS Safety Report 5054499-0 (Version None)
Quarter: 2006Q3

REPORT INFORMATION
  Report Type: 
  Country: None (occurrence: None)
  Receive Date: 20060713
  Receipt Date: 20060627
  Transmission Date: 20061208
  Serious: Yes (Hospitalization)
  Sender: FDA-Public Use
  Company Number: 2006PV015088

PATIENT
  Age: 55 Year
  Sex: Female
  Weight: 96.6162 kg

DRUGS (9)
  1. BYETTA [Suspect]
     Indication: DIABETES MELLITUS
     Dosage: 5 MCG;BID;SC
     Route: 058
     Dates: start: 20060220
  2. CELEBREX [Suspect]
  3. ASPIRIN [Suspect]
  4. AVANDIA [Concomitant]
  5. RAMIPRIL [Concomitant]
  6. ATENOLOL [Concomitant]
  7. ZOCOR [Concomitant]
  8. CELEXA [Concomitant]
  9. NITROGLYCERIN [Concomitant]

REACTIONS (4)
  - COLITIS [None]
  - CONSTIPATION [None]
  - GASTROINTESTINAL HAEMORRHAGE [None]
  - SYNCOPE [None]
